FAERS Safety Report 5237232-9 (Version None)
Quarter: 2007Q1

REPORT INFORMATION
  Report Type: 
  Country: None (occurrence: None)
  Receive Date: 20070213
  Receipt Date: 20070209
  Transmission Date: 20070707
  Serious: Yes (Death)
  Sender: FDA-Public Use
  Company Number: US-MERCK-0702USA01292

PATIENT
  Age: 75 Year
  Sex: Female

DRUGS (5)
  1. DECADRON [Suspect]
     Route: 048
  2. INFLIXIMAB [Suspect]
     Indication: RHEUMATOID ARTHRITIS
     Route: 041
     Dates: start: 20010718, end: 20050101
  3. LASIX [Concomitant]
     Route: 065
  4. TOPROL-XL [Concomitant]
     Route: 048
  5. PRINIVIL [Concomitant]
     Route: 048

REACTIONS (4)
  - BLOOD GLUCOSE INCREASED [None]
  - MENTAL STATUS CHANGES [None]
  - NON-SMALL CELL LUNG CANCER [None]
  - RESPIRATORY DISTRESS [None]
